FAERS Safety Report 5724809-7 (Version None)
Quarter: 2008Q2

REPORT INFORMATION
  Report Type: 
  Country: None (occurrence: None)
  Receive Date: 20080501
  Receipt Date: 20080417
  Transmission Date: 20081010
  Serious: Yes (Hospitalization)
  Sender: FDA-Public Use
  Company Number: JP-AMGEN-US275933

PATIENT
  Age: 54 Year
  Sex: Female

DRUGS (3)
  1. ENBREL [Suspect]
     Indication: RHEUMATOID ARTHRITIS
     Dosage: UNSPECIFIED
     Route: 058
     Dates: start: 20041001, end: 20060601
  2. METHOTREXATE [Suspect]
     Dosage: UNSPECIFIED
     Route: 065
     Dates: start: 20060701
  3. LEFLUNOMIDE [Suspect]
     Dosage: UNSPECIFIED
     Route: 065
     Dates: start: 20060701

REACTIONS (3)
  - DIARRHOEA [None]
  - PNEUMOCYSTIS JIROVECI PNEUMONIA [None]
  - RASH [None]
